FAERS Safety Report 14202447 (Version 1)
Quarter: 2017Q4

REPORT INFORMATION
  Report Type: Spontaneous
  Country: US (occurrence: US)
  Receive Date: 20171117
  Receipt Date: 20171117
  Transmission Date: 20180321
  Serious: Yes (Other)
  Sender: FDA-Public Use
  Company Number: US-009507513-1711USA006028

PATIENT
  Age: 50 Year
  Sex: Male

DRUGS (2)
  1. CUBICIN [Suspect]
     Active Substance: DAPTOMYCIN
     Indication: STAPHYLOCOCCAL BACTERAEMIA
     Dosage: 6 MG/KG, EVERY 48 HOURS (GIVEN AFTER HEMODIALYSIS ON DIALYSIS DAYS)
  2. VANCOMYCIN [Concomitant]
     Active Substance: VANCOMYCIN
     Indication: STAPHYLOCOCCAL BACTERAEMIA
     Dosage: 1000 MG, AS MONOTHERAPY, DOSED AFTER HEMODIALYSIS

REACTIONS (2)
  - Staphylococcal bacteraemia [Recovered/Resolved with Sequelae]
  - Drug ineffective [Unknown]
